FAERS Safety Report 4776599-2 (Version None)
Quarter: 2005Q3

REPORT INFORMATION
  Report Type: 
  Country: None (occurrence: None)
  Receive Date: 20050921
  Receipt Date: 20050908
  Transmission Date: 20060218
  Serious: No
  Sender: FDA-Public Use
  Company Number: 2005125956

PATIENT
  Age: 80 Year
  Sex: Male

DRUGS (2)
  1. LIPITOR [Suspect]
     Indication: HYPERCHOLESTEROLAEMIA
     Dosage: 250 MG (250 MG, DAILY)
     Dates: end: 20050101
  2. LISINOPRIL [Concomitant]

REACTIONS (8)
  - BACTERIAL INFECTION [None]
  - COAGULOPATHY [None]
  - ENDOSCOPY ABNORMAL [None]
  - GASTRIC INFECTION [None]
  - HAEMORRHAGE [None]
  - INTESTINAL HAEMORRHAGE [None]
  - LACERATION [None]
  - RHINITIS PERENNIAL [None]
